FAERS Safety Report 9117201 (Version 1)
Quarter: 2013Q1

REPORT INFORMATION
  Report Type: Spontaneous
  Country: SE (occurrence: SE)
  Receive Date: 20130225
  Receipt Date: 20130225
  Transmission Date: 20140127
  Serious: Yes (Death, Hospitalization)
  Sender: FDA-Public Use
  Company Number: SE-JNJFOC-20130206559

PATIENT
  Age: 63 Year
  Sex: Male

DRUGS (6)
  1. LEUSTATIN [Suspect]
     Indication: MYELOPROLIFERATIVE DISORDER
     Route: 042
     Dates: start: 200702
  2. LEUSTATIN [Suspect]
     Indication: MYELOPROLIFERATIVE DISORDER
     Route: 042
  3. LEUSTATIN [Suspect]
     Indication: MYELOPROLIFERATIVE DISORDER
     Route: 042
     Dates: start: 200705
  4. LEUSTATIN [Suspect]
     Indication: HAIRY CELL LEUKAEMIA
     Route: 042
     Dates: start: 200702
  5. LEUSTATIN [Suspect]
     Indication: HAIRY CELL LEUKAEMIA
     Route: 042
     Dates: start: 200705
  6. LEUSTATIN [Suspect]
     Indication: HAIRY CELL LEUKAEMIA
     Route: 042

REACTIONS (5)
  - Aspergillus infection [Fatal]
  - Hypereosinophilic syndrome [Unknown]
  - Myeloid leukaemia [Unknown]
  - Myeloid leukaemia [Unknown]
  - Myeloproliferative disorder [Unknown]
